FAERS Safety Report 25518976 (Version 2)
Quarter: 2025Q3

REPORT INFORMATION
  Report Type: Spontaneous
  Country: IL (occurrence: IL)
  Receive Date: 20250704
  Receipt Date: 20250718
  Transmission Date: 20251020
  Serious: Yes (Life-Threatening, Hospitalization, Other)
  Sender: STRIDES
  Company Number: None

PATIENT
  Age: 76 Year
  Sex: Male

DRUGS (19)
  1. PREGABALIN [Suspect]
     Active Substance: PREGABALIN
     Indication: Pain management
     Route: 065
  2. PREGABALIN [Suspect]
     Active Substance: PREGABALIN
     Indication: Neuralgia
     Route: 065
  3. PREGABALIN [Suspect]
     Active Substance: PREGABALIN
     Indication: Facial pain
     Route: 065
  4. PREGABALIN [Suspect]
     Active Substance: PREGABALIN
     Route: 065
  5. AMITRIPTYLINE [Suspect]
     Active Substance: AMITRIPTYLINE
     Indication: Depression
     Route: 065
  6. OXYCODONE [Suspect]
     Active Substance: OXYCODONE
     Indication: Product used for unknown indication
     Route: 065
  7. OXYCODONE [Suspect]
     Active Substance: OXYCODONE
     Route: 065
  8. TRAMADOL [Suspect]
     Active Substance: TRAMADOL
     Indication: Neuralgia
     Route: 065
  9. TRAMADOL [Suspect]
     Active Substance: TRAMADOL
     Indication: Facial pain
  10. PREDNISONE [Suspect]
     Active Substance: PREDNISONE
     Indication: Herpes zoster
     Route: 065
  11. ACYCLOVIR [Suspect]
     Active Substance: ACYCLOVIR
     Indication: Herpes zoster
     Route: 065
  12. ESCITALOPRAM [Suspect]
     Active Substance: ESCITALOPRAM OXALATE
     Indication: Depression
     Route: 065
  13. ESCITALOPRAM [Suspect]
     Active Substance: ESCITALOPRAM OXALATE
     Route: 065
  14. BUPRENORPHINE [Suspect]
     Active Substance: BUPRENORPHINE
     Indication: Product used for unknown indication
     Route: 062
  15. BUPRENORPHINE [Suspect]
     Active Substance: BUPRENORPHINE
     Indication: Neuralgia
  16. BUPRENORPHINE [Suspect]
     Active Substance: BUPRENORPHINE
     Indication: Facial pain
  17. ZOPICLONE [Concomitant]
     Active Substance: ZOPICLONE
     Indication: Depression
     Route: 065
  18. TAMSULOSIN [Concomitant]
     Active Substance: TAMSULOSIN
     Indication: Benign prostatic hyperplasia
     Route: 065
  19. AMLODIPINE [Concomitant]
     Active Substance: AMLODIPINE BESYLATE
     Indication: Product used for unknown indication
     Route: 065

REACTIONS (4)
  - Serotonin syndrome [Recovering/Resolving]
  - Accidental overdose [Unknown]
  - Fall [Unknown]
  - Drug ineffective [Unknown]
